FAERS Safety Report 15262767 (Version 1)
Quarter: 2018Q3

REPORT INFORMATION
  Report Type: Spontaneous
  Country: US (occurrence: US)
  Receive Date: 20180720
  Receipt Date: 20180720
  Transmission Date: 20181010
  Serious: Yes (Life-Threatening, Hospitalization)
  Sender: FDA-Public Use
  Company Number: None

PATIENT
  Age: 68 Year
  Sex: Female

DRUGS (14)
  1. BUMEX [Concomitant]
     Active Substance: BUMETANIDE
  2. LOSARTAN. [Concomitant]
     Active Substance: LOSARTAN
  3. ASA [Concomitant]
     Active Substance: ASPIRIN
  4. PREDNISONE. [Concomitant]
     Active Substance: PREDNISONE
  5. COUGH DM [Suspect]
     Active Substance: DEXTROMETHORPHAN HYDROBROMIDE
     Indication: COUGH
     Dosage: ?          QUANTITY:2 TEASPOON(S);?
     Route: 048
  6. SYNTHROID [Concomitant]
     Active Substance: LEVOTHYROXINE SODIUM
  7. SPIRONOLACTONE. [Concomitant]
     Active Substance: SPIRONOLACTONE
  8. TRAVATAN [Concomitant]
     Active Substance: TRAVOPROST
  9. VITAMIN D3 [Concomitant]
     Active Substance: CHOLECALCIFEROL
  10. KCL [Concomitant]
     Active Substance: POTASSIUM CHLORIDE
  11. COMBIVENT RESPIMAT [Concomitant]
     Active Substance: ALBUTEROL SULFATE\IPRATROPIUM BROMIDE
  12. DIGOXIN. [Concomitant]
     Active Substance: DIGOXIN
  13. COREG [Concomitant]
     Active Substance: CARVEDILOL
  14. COMBIGAN [Concomitant]
     Active Substance: BRIMONIDINE TARTRATE\TIMOLOL MALEATE

REACTIONS (5)
  - Unresponsive to stimuli [None]
  - Delirium [None]
  - Amnesia [None]
  - Abnormal behaviour [None]
  - Pyrexia [None]

NARRATIVE: CASE EVENT DATE: 20180713
